FAERS Safety Report 6180041-7 (Version None)
Quarter: 2009Q2

REPORT INFORMATION
  Report Type: 
  Country: None (occurrence: None)
  Receive Date: 20090505
  Receipt Date: 20090428
  Transmission Date: 20091009
  Serious: Yes (Other)
  Sender: FDA-Public Use
  Company Number: US-JNJCH-2009012028

PATIENT
  Sex: Male

DRUGS (1)
  1. BENADRYL CREAM ORIGINAL STRENGTH [Suspect]
     Indication: SKIN IRRITATION
     Dosage: TEXT:UNSPECIFIED TWICE IN ONE DAY
     Route: 061

REACTIONS (2)
  - APPLICATION SITE SWELLING [None]
  - INFECTION [None]
